FAERS Safety Report 6786922-5 (Version None)
Quarter: 2010Q2

REPORT INFORMATION
  Report Type: 
  Country: None (occurrence: None)
  Receive Date: 20100623
  Receipt Date: 20100618
  Transmission Date: 20101027
  Serious: Yes (Death)
  Sender: FDA-Public Use
  Company Number: US-GILEAD-2010-0026859

PATIENT
  Sex: Male
  Weight: 64.922 kg

DRUGS (8)
  1. LETAIRIS [Suspect]
     Indication: PULMONARY ARTERIAL HYPERTENSION
     Route: 048
     Dates: start: 20070904
  2. LETAIRIS [Suspect]
     Route: 048
     Dates: start: 20070807, end: 20070903
  3. TORSEMIDE [Concomitant]
  4. ZAROXOLYN [Concomitant]
  5. SPIRONOLACTONE [Concomitant]
  6. KLOR-CON [Concomitant]
  7. AMBIEN [Concomitant]
  8. ASPIRIN [Concomitant]

REACTIONS (1)
  - DEATH [None]
